FAERS Safety Report 20047202 (Version 1)
Quarter: 2021Q4

REPORT INFORMATION
  Report Type: Report from Study
  Country: US (occurrence: US)
  Receive Date: 20211109
  Receipt Date: 20211109
  Transmission Date: 20220303
  Serious: Yes (Hospitalization)
  Sender: FDA-Public Use
  Company Number: US-ROCHE-1737135

PATIENT
  Age: 51 Year
  Sex: Male
  Weight: 109.5 kg

DRUGS (52)
  1. POLATUZUMAB VEDOTIN [Suspect]
     Active Substance: POLATUZUMAB VEDOTIN
     Indication: Follicle centre lymphoma, follicular grade I, II, III
     Dosage: MOST RECENT DOSE PRIOR TO WHITE BLOOD CELL DECREASE, LYMPHOCYTE COUNT DECREASED, FEBRILE NEUTROPENIA
     Route: 042
     Dates: start: 20160303
  2. OBINUTUZUMAB [Suspect]
     Active Substance: OBINUTUZUMAB
     Indication: Follicle centre lymphoma, follicular grade I, II, III
     Dosage: MOST RECENT DOSE PRIOR TO WHITE BLOOD CELL DECREASE, LYMPHOCYTE COUNT DECREASED, FIRST EPISODE OF FE
     Route: 042
     Dates: start: 20160302
  3. BENDAMUSTINE [Suspect]
     Active Substance: BENDAMUSTINE
     Indication: Follicle centre lymphoma, follicular grade I, II, III
     Dosage: MOST RECENT DOSE PRIOR TO WHITE BLOOD CELL DECREASE, LYMPHOCYTE COUNT DECREASED, FEBRILE NEUTROPENIA
     Route: 042
     Dates: start: 20160303
  4. ACYCLOVIR [Concomitant]
     Active Substance: ACYCLOVIR
     Dosage: INDICATION ANTIVIRAL
     Dates: start: 20150805, end: 20160512
  5. ACYCLOVIR [Concomitant]
     Active Substance: ACYCLOVIR
     Dates: start: 20160520
  6. DAPSONE [Concomitant]
     Active Substance: DAPSONE
     Dosage: INDICATION ANTIBIOTIC AND ANTI-INFLAMMATORY
     Dates: start: 20151112
  7. DOCUSATE SODIUM [Concomitant]
     Active Substance: DOCUSATE SODIUM
     Indication: Constipation
     Dates: start: 20160122
  8. CLONAZEPAM [Concomitant]
     Active Substance: CLONAZEPAM
     Indication: Anxiety
     Dates: start: 20160130, end: 20160324
  9. CLONAZEPAM [Concomitant]
     Active Substance: CLONAZEPAM
     Indication: Panic attack
  10. ZYPREXA [Concomitant]
     Active Substance: OLANZAPINE
     Indication: Bipolar disorder
     Dates: start: 20160325, end: 20160421
  11. LEXAPRO [Concomitant]
     Active Substance: ESCITALOPRAM OXALATE
     Indication: Bipolar disorder
     Dates: start: 20160511
  12. LORAZEPAM [Concomitant]
     Active Substance: LORAZEPAM
     Indication: Bipolar disorder
     Dates: start: 20160511
  13. LATUDA [Concomitant]
     Active Substance: LURASIDONE HYDROCHLORIDE
     Indication: Bipolar disorder
     Dates: start: 20160422
  14. PEGFILGRASTIM [Concomitant]
     Active Substance: PEGFILGRASTIM
     Indication: Prophylaxis
     Dates: start: 20160330, end: 20160330
  15. PEGFILGRASTIM [Concomitant]
     Active Substance: PEGFILGRASTIM
     Indication: Febrile neutropenia
     Dates: start: 20160608, end: 20160608
  16. PEGFILGRASTIM [Concomitant]
     Active Substance: PEGFILGRASTIM
     Dates: start: 20160707, end: 20160707
  17. PEGFILGRASTIM [Concomitant]
     Active Substance: PEGFILGRASTIM
     Dates: start: 20160803, end: 20160803
  18. PEGFILGRASTIM [Concomitant]
     Active Substance: PEGFILGRASTIM
     Dates: start: 20160427, end: 20160427
  19. DIPHENHYDRAMINE [Concomitant]
     Active Substance: DIPHENHYDRAMINE
     Indication: Chemotherapy
     Dates: start: 20160425, end: 20160425
  20. DIPHENHYDRAMINE [Concomitant]
     Active Substance: DIPHENHYDRAMINE
     Dates: start: 20160606, end: 20160606
  21. DIPHENHYDRAMINE [Concomitant]
     Active Substance: DIPHENHYDRAMINE
     Dates: start: 20160705, end: 20160705
  22. DIPHENHYDRAMINE [Concomitant]
     Active Substance: DIPHENHYDRAMINE
     Dates: start: 20160801, end: 20160801
  23. DIPHENHYDRAMINE [Concomitant]
     Active Substance: DIPHENHYDRAMINE
     Dates: start: 20160302, end: 20160302
  24. DIPHENHYDRAMINE [Concomitant]
     Active Substance: DIPHENHYDRAMINE
     Dates: start: 20160303, end: 20160303
  25. DIPHENHYDRAMINE [Concomitant]
     Active Substance: DIPHENHYDRAMINE
     Dates: start: 20160308, end: 20160308
  26. DIPHENHYDRAMINE [Concomitant]
     Active Substance: DIPHENHYDRAMINE
     Dates: start: 20160328, end: 20160328
  27. DIPHENHYDRAMINE [Concomitant]
     Active Substance: DIPHENHYDRAMINE
     Dates: start: 20160316, end: 20160316
  28. DEXAMETHASONE [Concomitant]
     Active Substance: DEXAMETHASONE
     Indication: Chemotherapy
     Dates: start: 20160425, end: 20160426
  29. DEXAMETHASONE [Concomitant]
     Active Substance: DEXAMETHASONE
     Dates: start: 20160606, end: 20160607
  30. DEXAMETHASONE [Concomitant]
     Active Substance: DEXAMETHASONE
     Dates: start: 20160705, end: 20160706
  31. DEXAMETHASONE [Concomitant]
     Active Substance: DEXAMETHASONE
     Dates: start: 20160801, end: 20160801
  32. DEXAMETHASONE [Concomitant]
     Active Substance: DEXAMETHASONE
     Dates: start: 20160802, end: 20160802
  33. DEXAMETHASONE [Concomitant]
     Active Substance: DEXAMETHASONE
     Dates: start: 20160302, end: 20160302
  34. DEXAMETHASONE [Concomitant]
     Active Substance: DEXAMETHASONE
     Dates: start: 20160303, end: 20160304
  35. DEXAMETHASONE [Concomitant]
     Active Substance: DEXAMETHASONE
     Dates: start: 20160328, end: 20160329
  36. DEXAMETHASONE [Concomitant]
     Active Substance: DEXAMETHASONE
     Dates: start: 20160802, end: 20160802
  37. ACETAMINOPHEN [Concomitant]
     Active Substance: ACETAMINOPHEN
     Indication: Chemotherapy
     Dates: start: 20160425, end: 20160425
  38. ACETAMINOPHEN [Concomitant]
     Active Substance: ACETAMINOPHEN
     Indication: Pyrexia
     Dates: start: 20160606, end: 20160606
  39. ACETAMINOPHEN [Concomitant]
     Active Substance: ACETAMINOPHEN
     Dates: start: 20160705, end: 20160705
  40. ACETAMINOPHEN [Concomitant]
     Active Substance: ACETAMINOPHEN
     Dates: start: 20160801, end: 20160801
  41. ACETAMINOPHEN [Concomitant]
     Active Substance: ACETAMINOPHEN
     Dates: start: 20160302, end: 20160302
  42. ACETAMINOPHEN [Concomitant]
     Active Substance: ACETAMINOPHEN
     Dates: start: 20160303, end: 20160303
  43. ACETAMINOPHEN [Concomitant]
     Active Substance: ACETAMINOPHEN
     Dates: start: 20160308, end: 20160308
  44. ACETAMINOPHEN [Concomitant]
     Active Substance: ACETAMINOPHEN
     Dates: start: 20160316, end: 20160316
  45. ACETAMINOPHEN [Concomitant]
     Active Substance: ACETAMINOPHEN
     Dates: start: 20160328, end: 20160328
  46. ACETAMINOPHEN [Concomitant]
     Active Substance: ACETAMINOPHEN
     Dates: start: 20160401, end: 20160404
  47. PALONOSETRON [Concomitant]
     Active Substance: PALONOSETRON
     Indication: Chemotherapy
     Dates: start: 20160425, end: 20160426
  48. PALONOSETRON [Concomitant]
     Active Substance: PALONOSETRON
     Dates: start: 20160606, end: 20160607
  49. PALONOSETRON [Concomitant]
     Active Substance: PALONOSETRON
     Dates: start: 20160705, end: 20160706
  50. PALONOSETRON [Concomitant]
     Active Substance: PALONOSETRON
     Dates: start: 20160801, end: 20160801
  51. PALONOSETRON [Concomitant]
     Active Substance: PALONOSETRON
     Dates: start: 20160802, end: 20160802
  52. PALONOSETRON [Concomitant]
     Active Substance: PALONOSETRON
     Dates: start: 20160328, end: 20160329

REACTIONS (5)
  - Paronychia [Recovered/Resolved]
  - Lymphopenia [Recovered/Resolved]
  - Leukopenia [Recovered/Resolved]
  - Febrile neutropenia [Recovered/Resolved]
  - Leukopenia [Recovered/Resolved]

NARRATIVE: CASE EVENT DATE: 20160331
